FAERS Safety Report 9223928 (Version 1)
Quarter: 2013Q2

REPORT INFORMATION
  Report Type: Spontaneous
  Country: US (occurrence: US)
  Receive Date: 20130411
  Receipt Date: 20130411
  Transmission Date: 20140414
  Serious: No
  Sender: FDA-Public Use
  Company Number: US-BIOGENIDEC-2013BI030607

PATIENT
  Age: 56 Year
  Sex: Female

DRUGS (2)
  1. TYSABRI [Suspect]
     Indication: MULTIPLE SCLEROSIS
     Route: 042
     Dates: start: 20130301
  2. ATENOLOL [Concomitant]
     Indication: HYPERTENSION

REACTIONS (8)
  - Muscular weakness [Not Recovered/Not Resolved]
  - Hemiparesis [Not Recovered/Not Resolved]
  - Hypoaesthesia [Not Recovered/Not Resolved]
  - Insomnia [Not Recovered/Not Resolved]
  - Band sensation [Recovered/Resolved]
  - Dysgraphia [Recovered/Resolved]
  - Poor quality sleep [Recovered/Resolved]
  - Pruritus [Recovered/Resolved]
